FAERS Safety Report 16747998 (Version 1)
Quarter: 2019Q3

REPORT INFORMATION
  Report Type: Spontaneous
  Country: US (occurrence: US)
  Receive Date: 20190827
  Receipt Date: 20190827
  Transmission Date: 20191005
  Serious: No
  Sender: FDA-Public Use
  Company Number: US-BAUSCH-BL-2019-023015

PATIENT
  Sex: Female

DRUGS (1)
  1. TRULANCE [Suspect]
     Active Substance: PLECANATIDE
     Indication: CONSTIPATION
     Route: 048

REACTIONS (2)
  - Respiratory symptom [Not Recovered/Not Resolved]
  - Sinus disorder [Not Recovered/Not Resolved]
